FAERS Safety Report 4361302-0 (Version None)
Quarter: 2004Q2

REPORT INFORMATION
  Report Type: 
  Country: None (occurrence: None)
  Receive Date: 20040520
  Receipt Date: 20031028
  Transmission Date: 20050107
  Serious: No
  Sender: FDA-Public Use
  Company Number: PHHO2003CA13621

PATIENT
  Age: 73 Year
  Sex: Female

DRUGS (1)
  1. ZELNORM [Suspect]
     Dosage: 6 MG, QD
     Route: 048
     Dates: start: 20030801, end: 20030801

REACTIONS (1)
  - DIARRHOEA [None]
